FAERS Safety Report 6305558-3 (Version None)
Quarter: 2009Q3

REPORT INFORMATION
  Report Type: 
  Country: None (occurrence: None)
  Receive Date: 20090811
  Receipt Date: 20090803
  Transmission Date: 20100115
  Serious: Yes (Life-Threatening)
  Sender: FDA-Public Use
  Company Number: FR-MERCK-0908USA01108

PATIENT
  Age: 36 Year
  Sex: Female

DRUGS (12)
  1. SUSTIVA [Concomitant]
     Indication: HIV INFECTION
     Route: 065
     Dates: start: 20090503, end: 20090516
  2. BACTRIM [Suspect]
     Indication: ANTIFUNGAL PROPHYLAXIS
     Route: 048
     Dates: start: 20090425, end: 20090516
  3. TRUVADA [Suspect]
     Indication: HIV INFECTION
     Route: 048
  4. FUZEON [Suspect]
     Indication: HIV INFECTION
     Route: 058
  5. RIFADIN [Suspect]
     Indication: DISSEMINATED TUBERCULOSIS
     Route: 048
     Dates: start: 20090425
  6. MYAMBUTOL [Suspect]
     Indication: DISSEMINATED TUBERCULOSIS
     Route: 048
     Dates: start: 20090425
  7. PIRILENE [Suspect]
     Indication: DISSEMINATED TUBERCULOSIS
     Route: 048
  8. RIMIFON [Suspect]
     Indication: DISSEMINATED TUBERCULOSIS
     Route: 065
     Dates: start: 20090425
  9. SINGULAIR [Suspect]
     Indication: IMMUNE RECONSTITUTION SYNDROME
     Route: 048
     Dates: start: 20090511, end: 20090516
  10. IMOVANE [Suspect]
     Indication: INSOMNIA
     Route: 065
     Dates: start: 20090427, end: 20090516
  11. ANSATIPINE [Concomitant]
     Route: 065
     Dates: end: 20090503
  12. ZECLAR [Concomitant]
     Route: 065
     Dates: end: 20090503

REACTIONS (1)
  - HEPATITIS FULMINANT [None]
